FAERS Safety Report 8152120-6 (Version None)
Quarter: 2012Q1

REPORT INFORMATION
  Report Type: 
  Country: None (occurrence: None)
  Receive Date: 20120221
  Receipt Date: 20120206
  Transmission Date: 20120608
  Serious: Yes (Other)
  Sender: FDA-Public Use
  Company Number: GB-PFIZER INC-2008003440

PATIENT
  Age: 67 Year
  Sex: Female

DRUGS (7)
  1. SIMVASTATIN [Interacting]
     Indication: MYOCARDIAL INFARCTION
     Dosage: UNK
     Route: 065
  2. PLAVIX [Interacting]
     Indication: MYOCARDIAL INFARCTION
     Dosage: UNK
     Route: 065
  3. ACETYLSALICYLIC ACID SRT [Interacting]
     Indication: MYOCARDIAL INFARCTION
     Dosage: UNK
     Route: 065
  4. BISOPROLOL FUMARATE [Interacting]
     Indication: MYOCARDIAL INFARCTION
     Route: 065
  5. ALTACE [Interacting]
     Indication: MYOCARDIAL INFARCTION
     Dosage: 1.25 MG
     Route: 065
  6. PREGABALIN [Suspect]
     Indication: TRIGEMINAL NEURALGIA
     Dosage: 300 MG, 2X/DAY
     Route: 065
     Dates: start: 20060101
  7. CLOPIDOGREL BISULFATE [Interacting]
     Indication: MYOCARDIAL INFARCTION
     Dosage: UNK
     Route: 065

REACTIONS (3)
  - DRUG INEFFECTIVE [None]
  - MYOCARDIAL INFARCTION [None]
  - DRUG INTERACTION [None]
